FAERS Safety Report 17821179 (Version 1)
Quarter: 2020Q2

REPORT INFORMATION
  Report Type: Spontaneous
  Country: SI (occurrence: SI)
  Receive Date: 20200525
  Receipt Date: 20200525
  Transmission Date: 20200714
  Serious: Yes (Hospitalization)
  Sender: FDA-Public Use
  Company Number: SI-ASTRAZENECA-2020SE66227

PATIENT
  Age: 45 Year
  Sex: Female
  Weight: 90 kg

DRUGS (5)
  1. METOTREXATE [Concomitant]
     Active Substance: METHOTREXATE SODIUM
     Indication: RHEUMATOID ARTHRITIS
     Route: 065
  2. LANTUS [Concomitant]
     Active Substance: INSULIN GLARGINE
     Indication: TYPE 2 DIABETES MELLITUS
     Dosage: 42 UNITS IN THE EVENING
     Route: 065
  3. HUMALOG [Concomitant]
     Active Substance: INSULIN LISPRO
     Dosage: 3 INTO 20 UNITS
     Route: 065
  4. XIGDUO XR [Suspect]
     Active Substance: DAPAGLIFLOZIN PROPANEDIOL\METFORMIN HYDROCHLORIDE
     Indication: TYPE 2 DIABETES MELLITUS
     Dosage: 5 MG/1000 MG TWO TIMES A DAY
     Route: 048
     Dates: start: 201905, end: 20200505
  5. FOLATE [Concomitant]
     Active Substance: FOLATE SODIUM
     Indication: RHEUMATOID ARTHRITIS
     Dosage: ONCE A WEEK
     Route: 065

REACTIONS (1)
  - Diabetic ketoacidosis [Recovered/Resolved]

NARRATIVE: CASE EVENT DATE: 20200501
